FAERS Safety Report 23774004 (Version 1)
Quarter: 2024Q2

REPORT INFORMATION
  Report Type: Spontaneous
  Country: ES (occurrence: ES)
  Receive Date: 20240423
  Receipt Date: 20240423
  Transmission Date: 20240715
  Serious: Yes (Other)
  Sender: FDA-Public Use
  Company Number: None

PATIENT
  Age: 63 Year
  Sex: Female

DRUGS (9)
  1. ETOPOSIDE [Interacting]
     Active Substance: ETOPOSIDE
     Indication: Haemophagocytic lymphohistiocytosis
     Dosage: ETOPOSIDE (518A)
     Route: 042
     Dates: start: 20231015, end: 20231017
  2. ERTAPENEM [Interacting]
     Active Substance: ERTAPENEM
     Indication: Haemophagocytic lymphohistiocytosis
     Dosage: ERTAPENEM INJECTION PERFUSION 1 VIAL
     Route: 042
     Dates: start: 20231010, end: 20231013
  3. IFOSFAMIDE [Interacting]
     Active Substance: IFOSFAMIDE
     Indication: Angiocentric lymphoma
     Dosage: IFOSFAMIDA (337A)
     Route: 042
     Dates: start: 20231015, end: 20231017
  4. CISPLATIN [Interacting]
     Active Substance: CISPLATIN
     Indication: Haemophagocytic lymphohistiocytosis
     Route: 042
     Dates: start: 20231116, end: 20231122
  5. ACETAMINOPHEN [Interacting]
     Active Substance: ACETAMINOPHEN
     Indication: Product used for unknown indication
     Dosage: PARACETAMOL ORAL SOLUTION/SUSPENSION SACHET
     Route: 048
     Dates: start: 20230928, end: 20231010
  6. GEMCITABINE [Interacting]
     Active Substance: GEMCITABINE
     Indication: Angiocentric lymphoma
     Dosage: GEMCITABINA (7314A)
     Route: 042
     Dates: start: 20231115, end: 20231122
  7. GEMCITABINE [Interacting]
     Active Substance: GEMCITABINE
     Indication: Angiocentric lymphoma
     Route: 042
     Dates: start: 20231226, end: 20231226
  8. AMOXICILLIN\CLAVULANIC ACID [Interacting]
     Active Substance: AMOXICILLIN\CLAVULANIC ACID
     Indication: Haemophagocytic lymphohistiocytosis
     Route: 042
     Dates: start: 20230928, end: 20231009
  9. METHOTREXATE (METHOTREXATE SODIUM) [Interacting]
     Active Substance: METHOTREXATE SODIUM
     Indication: Angiocentric lymphoma
     Dosage: METOTREXATO (418A)
     Route: 042
     Dates: start: 20231014, end: 20231014

REACTIONS (5)
  - Mixed liver injury [Recovered/Resolved]
  - Coagulopathy [Recovered/Resolved]
  - Hyperbilirubinaemia [Recovered/Resolved]
  - Mixed liver injury [Recovered/Resolved]
  - Hyperbilirubinaemia [Recovered/Resolved]

NARRATIVE: CASE EVENT DATE: 20231013
